FAERS Safety Report 22073808 (Version 3)
Quarter: 2023Q2

REPORT INFORMATION
  Report Type: Spontaneous
  Country: US (occurrence: US)
  Receive Date: 20230308
  Receipt Date: 20230418
  Transmission Date: 20230721
  Serious: Yes (Other)
  Sender: FDA-Public Use
  Company Number: US-PFIZER INC-PV202300041664

PATIENT
  Age: 52 Year
  Sex: Female
  Weight: 85.86 kg

DRUGS (5)
  1. IBRANCE [Suspect]
     Active Substance: PALBOCICLIB
     Dosage: 100 MG
  2. IBRANCE [Suspect]
     Active Substance: PALBOCICLIB
     Dosage: 100 MG, CYCLIC (ONE A DAY FOR 3 WEEKS OR 21 DAYS AND THEN OFF 7 DAYS EVERY 28 DAYS)
     Dates: start: 202209
  3. CHOLECALCIFEROL [Concomitant]
     Active Substance: CHOLECALCIFEROL
     Dosage: UNK
  4. METFORMIN [Concomitant]
     Active Substance: METFORMIN HYDROCHLORIDE
     Indication: Diabetes mellitus
     Dosage: UNK
  5. INSULIN NOS [Concomitant]
     Active Substance: INSULIN NOS
     Indication: Diabetes mellitus
     Dosage: UNK

REACTIONS (5)
  - Tooth impacted [Unknown]
  - Tooth fracture [Unknown]
  - Toothache [Unknown]
  - Tooth socket haemorrhage [Unknown]
  - Gingival pain [Unknown]

NARRATIVE: CASE EVENT DATE: 20230201
